FAERS Safety Report 16653740 (Version 1)
Quarter: 2019Q3

REPORT INFORMATION
  Report Type: Spontaneous
  Country: US (occurrence: US)
  Receive Date: 20190731
  Receipt Date: 20190731
  Transmission Date: 20191004
  Serious: Yes (Other)
  Sender: FDA-Public Use
  Company Number: US-GLAXOSMITHKLINE-US2019AMR136364

PATIENT
  Age: 71 Year
  Sex: Male
  Weight: 100.23 kg

DRUGS (2)
  1. AMBIEN [Suspect]
     Active Substance: ZOLPIDEM TARTRATE
     Indication: GASTROOESOPHAGEAL REFLUX DISEASE
     Dosage: UNK
     Route: 065
  2. ZANTAC [Suspect]
     Active Substance: RANITIDINE HYDROCHLORIDE
     Indication: PRODUCT USED FOR UNKNOWN INDICATION
     Dosage: UNK
     Route: 065

REACTIONS (37)
  - Staphylococcal infection [Unknown]
  - Hypersensitivity [Unknown]
  - Tissue injury [Unknown]
  - Sinus operation [Unknown]
  - Somnolence [Unknown]
  - Rash [Unknown]
  - Depression [Unknown]
  - Tongue pruritus [Unknown]
  - Immune system disorder [Unknown]
  - Dizziness [Unknown]
  - Bone loss [Unknown]
  - Upper respiratory tract infection [Unknown]
  - Sinus pain [Unknown]
  - Sinusitis [Unknown]
  - Oropharyngeal pain [Unknown]
  - Pharyngeal swelling [Unknown]
  - Osteomyelitis [Unknown]
  - Pseudomonas infection [Unknown]
  - Erectile dysfunction [Unknown]
  - Decreased interest [Unknown]
  - Feeling abnormal [Unknown]
  - Pain in jaw [Unknown]
  - Ethmoid sinus surgery [Unknown]
  - Nasal septal operation [Unknown]
  - Exeresis [Unknown]
  - Pruritus [Unknown]
  - Swelling face [Unknown]
  - Swollen tongue [Unknown]
  - Ill-defined disorder [Unknown]
  - Headache [Recovering/Resolving]
  - Fatigue [Unknown]
  - Lethargy [Unknown]
  - Facial pain [Unknown]
  - Tooth extraction [Unknown]
  - Disturbance in attention [Unknown]
  - Enterostomy [Unknown]
  - Throat irritation [Unknown]

NARRATIVE: CASE EVENT DATE: 2015
